FAERS Safety Report 8366885-1 (Version None)
Quarter: 2012Q2

REPORT INFORMATION
  Report Type: 
  Country: None (occurrence: None)
  Receive Date: 20120517
  Receipt Date: 20120508
  Transmission Date: 20120825
  Serious: Yes (Hospitalization)
  Sender: FDA-Public Use
  Company Number: US-PFIZER INC-2012112621

PATIENT
  Sex: Female

DRUGS (3)
  1. ROBITUSSIN PEAK COLD SUGAR FREE COUGH AND CHEST CONGESTION DM [Suspect]
     Indication: RESPIRATORY TRACT CONGESTION
  2. WARFARIN [Concomitant]
     Indication: ANTICOAGULANT THERAPY
     Dosage: 0.25 MG, ALTERNATE DAY
  3. ROBITUSSIN PEAK COLD SUGAR FREE COUGH AND CHEST CONGESTION DM [Suspect]
     Indication: COUGH
     Dosage: 2 TEASPOONFUL (10ML) EVERY 4 HRS
     Route: 048
     Dates: start: 20120401, end: 20120401

REACTIONS (1)
  - CARDIAC FAILURE CONGESTIVE [None]
